FAERS Safety Report 4355113-X (Version None)
Quarter: 2004Q2

REPORT INFORMATION
  Report Type: 
  Country: None (occurrence: None)
  Receive Date: 20040504
  Receipt Date: 20040427
  Transmission Date: 20050107
  Serious: Yes (Hospitalization)
  Sender: FDA-Public Use
  Company Number: 200411504GDS

PATIENT
  Age: 79 Year
  Sex: Female

DRUGS (11)
  1. ASPIRIN [Suspect]
     Dosage: 100 MG, TOTAL DAILY, ORAL
     Route: 048
  2. ACETAZOLAMIDE [Suspect]
     Indication: GLAUCOMA
     Dosage: 750 MG, TOTAL DAILY,
     Dates: start: 20040407, end: 20040411
  3. LISINOPRIL [Concomitant]
  4. TRIMETAZIDINE [Concomitant]
  5. ISOSORBIDE MONONITRATE [Concomitant]
  6. ALLOPURINOL TAB [Concomitant]
  7. FUROSEMIDE [Concomitant]
  8. BROMAZEPAM [Concomitant]
  9. SIMVASTATIN [Concomitant]
  10. HIDROSMIN [Concomitant]
  11. LONAZOLAC [Concomitant]

REACTIONS (2)
  - DRUG INTERACTION [None]
  - METABOLIC ACIDOSIS [None]
